FAERS Safety Report 8541540-3 (Version None)
Quarter: 2012Q3

REPORT INFORMATION
  Report Type: 
  Country: None (occurrence: None)
  Receive Date: 20120726
  Receipt Date: 20120414
  Transmission Date: 20120928
  Serious: No
  Sender: FDA-Public Use
  Company Number: US-MUTUAL PHARMACEUTICAL COMPANY, INC.-CLCY20120063

PATIENT
  Sex: Female

DRUGS (1)
  1. COLCRYS [Suspect]
     Indication: CHONDROCALCINOSIS PYROPHOSPHATE
     Route: 065
     Dates: start: 20120411

REACTIONS (3)
  - NAUSEA [None]
  - DIZZINESS [None]
  - ASTHENIA [None]
